FAERS Safety Report 5186809-8 (Version None)
Quarter: 2006Q4

REPORT INFORMATION
  Report Type: 
  Country: None (occurrence: None)
  Receive Date: 20061220
  Receipt Date: 20061031
  Transmission Date: 20070319
  Serious: No
  Sender: FDA-Public Use
  Company Number: US-AMGEN-KDL198865

PATIENT
  Sex: Female

DRUGS (3)
  1. ENBREL [Suspect]
     Indication: RHEUMATOID ARTHRITIS
     Route: 058
     Dates: start: 20041011
  2. METHOTREXATE [Concomitant]
     Dates: start: 19980101
  3. AZULFIDINE [Concomitant]
     Route: 048
     Dates: start: 20060801

REACTIONS (3)
  - NAUSEA [None]
  - PHARYNGOLARYNGEAL PAIN [None]
  - RHINORRHOEA [None]
